FAERS Safety Report 18184033 (Version 3)
Quarter: 2020Q4

REPORT INFORMATION
  Report Type: Spontaneous
  Country: JP (occurrence: JP)
  Receive Date: 20200823
  Receipt Date: 20201105
  Transmission Date: 20210113
  Serious: Yes (Hospitalization, Other)
  Sender: FDA-Public Use
  Company Number: JP-TAKEDA-2020TJP017122

PATIENT
  Age: 20 Year
  Sex: Male
  Weight: 63.1 kg

DRUGS (3)
  1. ENTYVIO [Suspect]
     Active Substance: VEDOLIZUMAB
     Indication: COLITIS ULCERATIVE
     Dosage: 300 MILLIGRAM
     Route: 041
     Dates: start: 20191030, end: 20200722
  2. RINDERON [BETAMETHASONE] [Concomitant]
     Active Substance: BETAMETHASONE
     Indication: COLITIS ULCERATIVE
     Dosage: 1.0 MILLIGRAM
     Route: 054
     Dates: start: 20190828, end: 20200401
  3. PREDONEMA [Concomitant]
     Active Substance: PREDNISOLONE SODIUM PHOSPHATE
     Indication: COLITIS ULCERATIVE
     Dosage: 20 MILLIGRAM
     Route: 054
     Dates: start: 20190613, end: 20200310

REACTIONS (3)
  - Hepatic function abnormal [Recovering/Resolving]
  - Animal bite [Unknown]
  - Liver abscess [Recovered/Resolved]

NARRATIVE: CASE EVENT DATE: 20200310
